FAERS Safety Report 7131598-0 (Version None)
Quarter: 2010Q4

REPORT INFORMATION
  Report Type: 
  Country: None (occurrence: None)
  Receive Date: 20101201
  Receipt Date: 20101019
  Transmission Date: 20110411
  Serious: Yes (Disabling, Other)
  Sender: FDA-Public Use
  Company Number: US-BAXTER-2009BH015737

PATIENT
  Age: 61 Year
  Sex: Male
  Weight: 77 kg

DRUGS (52)
  1. HEPARIN SODIUM INJECTION [Suspect]
     Indication: MYOCARDIAL INFARCTION
     Route: 042
     Dates: start: 20080110
  2. HEPARIN SODIUM INJECTION [Suspect]
     Indication: CATHETERISATION CARDIAC
     Route: 042
     Dates: start: 20080110
  3. HEPARIN SODIUM INJECTION [Suspect]
     Indication: CARDIAC VENTRICULOGRAM LEFT
     Route: 042
     Dates: start: 20080110
  4. HEPARIN SODIUM INJECTION [Suspect]
     Indication: ANGIOGRAM
     Route: 042
     Dates: start: 20080110
  5. HEPARIN SODIUM INJECTION [Suspect]
     Route: 042
     Dates: start: 20080110
  6. HEPARIN SODIUM INJECTION [Suspect]
     Route: 042
     Dates: start: 20080110
  7. HEPARIN SODIUM INJECTION [Suspect]
     Route: 042
     Dates: start: 20080110
  8. HEPARIN SODIUM INJECTION [Suspect]
     Route: 042
     Dates: start: 20080110
  9. HEPARIN SODIUM INJECTION [Suspect]
     Route: 042
     Dates: start: 20080110
  10. HEPARIN SODIUM INJECTION [Suspect]
     Route: 042
     Dates: start: 20080110
  11. HEPARIN SODIUM INJECTION [Suspect]
     Route: 042
     Dates: start: 20080110
  12. HEPARIN SODIUM INJECTION [Suspect]
     Route: 042
     Dates: start: 20080110
  13. HEPARIN SODIUM INJECTION [Suspect]
     Route: 042
     Dates: start: 20080110
  14. HEPARIN SODIUM INJECTION [Suspect]
     Route: 042
     Dates: start: 20080110
  15. HEPARIN SODIUM INJECTION [Suspect]
     Route: 042
     Dates: start: 20080110
  16. HEPARIN SODIUM INJECTION [Suspect]
     Route: 042
     Dates: start: 20080110
  17. HEPARIN SODIUM INJECTION [Suspect]
     Route: 042
     Dates: start: 20080110
  18. HEPARIN SODIUM INJECTION [Suspect]
     Route: 042
     Dates: start: 20080110
  19. HEPARIN SODIUM INJECTION [Suspect]
     Route: 042
     Dates: start: 20080110
  20. HEPARIN SODIUM INJECTION [Suspect]
     Route: 042
     Dates: start: 20080110
  21. HEPARIN SODIUM INJECTION [Suspect]
     Route: 042
     Dates: start: 20080110
  22. HEPARIN SODIUM INJECTION [Suspect]
     Route: 042
     Dates: start: 20080110
  23. HEPARIN SODIUM INJECTION [Suspect]
     Route: 042
     Dates: start: 20080110
  24. HEPARIN SODIUM INJECTION [Suspect]
     Route: 042
     Dates: start: 20080110
  25. HEPARIN SODIUM INJECTION [Suspect]
     Route: 042
     Dates: start: 20080115, end: 20080122
  26. HEPARIN SODIUM INJECTION [Suspect]
     Route: 042
     Dates: start: 20080115, end: 20080122
  27. HEPARIN SODIUM INJECTION [Suspect]
     Route: 042
     Dates: start: 20080115, end: 20080122
  28. HEPARIN SODIUM INJECTION [Suspect]
     Route: 042
     Dates: start: 20080115, end: 20080122
  29. HEPARIN SODIUM INJECTION [Suspect]
     Route: 042
     Dates: start: 20080324, end: 20080324
  30. HEPARIN SODIUM INJECTION [Suspect]
     Route: 042
     Dates: start: 20080324, end: 20080324
  31. HEPARIN SODIUM INJECTION [Suspect]
     Route: 042
     Dates: start: 20080324, end: 20080324
  32. HEPARIN SODIUM INJECTION [Suspect]
     Route: 042
     Dates: start: 20080324, end: 20080324
  33. HEPARIN SODIUM INJECTION [Suspect]
     Route: 042
     Dates: start: 20080324, end: 20080324
  34. HEPARIN SODIUM INJECTION [Suspect]
     Route: 042
     Dates: start: 20080324, end: 20080324
  35. HEPARIN SODIUM INJECTION [Suspect]
     Route: 042
     Dates: start: 20080324, end: 20080324
  36. HEPARIN SODIUM INJECTION [Suspect]
     Route: 042
     Dates: start: 20080324, end: 20080324
  37. NAPROXEN [Concomitant]
     Indication: PRODUCT USED FOR UNKNOWN INDICATION
     Route: 065
  38. CLOPIDOGREL BISULFATE [Concomitant]
     Indication: PRODUCT USED FOR UNKNOWN INDICATION
     Route: 065
     Dates: start: 20080101
  39. ATENOLOL [Concomitant]
     Indication: PRODUCT USED FOR UNKNOWN INDICATION
     Route: 065
  40. SIMVASTATIN [Concomitant]
     Indication: PRODUCT USED FOR UNKNOWN INDICATION
     Route: 065
  41. OMEPRAZOLE [Concomitant]
     Indication: PRODUCT USED FOR UNKNOWN INDICATION
     Route: 065
  42. ENOXAPARIN SODIUM [Concomitant]
     Indication: PRODUCT USED FOR UNKNOWN INDICATION
     Route: 065
     Dates: start: 20080115, end: 20080201
  43. METOPROLOL [Concomitant]
     Indication: PRODUCT USED FOR UNKNOWN INDICATION
     Route: 065
  44. ASPIRIN [Concomitant]
     Indication: PRODUCT USED FOR UNKNOWN INDICATION
     Route: 065
  45. ASPIRIN [Concomitant]
     Route: 065
  46. LOVENOX [Concomitant]
     Indication: PRODUCT USED FOR UNKNOWN INDICATION
     Route: 065
  47. NORVASK [Concomitant]
     Indication: PRODUCT USED FOR UNKNOWN INDICATION
     Route: 065
  48. LASIX [Concomitant]
     Indication: PRODUCT USED FOR UNKNOWN INDICATION
     Route: 065
  49. BUMEX [Concomitant]
     Indication: PRODUCT USED FOR UNKNOWN INDICATION
     Route: 042
  50. DOBUTAMINE [Concomitant]
     Indication: PRODUCT USED FOR UNKNOWN INDICATION
     Route: 042
  51. LASIX [Concomitant]
     Route: 042
  52. ASPIRIN [Concomitant]
     Indication: PRODUCT USED FOR UNKNOWN INDICATION
     Route: 065

REACTIONS (26)
  - AGITATION [None]
  - ASTHENIA [None]
  - ATRIAL FIBRILLATION [None]
  - ATRIAL FLUTTER [None]
  - CARDIAC ARREST [None]
  - CARDIAC FAILURE CHRONIC [None]
  - CARDIAC FAILURE CONGESTIVE [None]
  - CARDIOGENIC SHOCK [None]
  - CARDIOMYOPATHY [None]
  - CHEST PAIN [None]
  - COGNITIVE DISORDER [None]
  - CORONARY ARTERY OCCLUSION [None]
  - DYSPNOEA [None]
  - HYPOTENSION [None]
  - MENTAL STATUS CHANGES [None]
  - MITRAL VALVE INCOMPETENCE [None]
  - MOBILITY DECREASED [None]
  - NOSOCOMIAL INFECTION [None]
  - PLEURAL EFFUSION [None]
  - PNEUMONIA ASPIRATION [None]
  - RESPIRATORY FAILURE [None]
  - SINUS ARREST [None]
  - THROMBOSIS IN DEVICE [None]
  - TRICUSPID VALVE INCOMPETENCE [None]
  - VENTRICULAR TACHYCARDIA [None]
  - WHEEZING [None]
